FAERS Safety Report 15937786 (Version 4)
Quarter: 2019Q3

REPORT INFORMATION
  Report Type: Spontaneous
  Country: JP (occurrence: JP)
  Receive Date: 20190208
  Receipt Date: 20190701
  Transmission Date: 20191004
  Serious: Yes (Hospitalization, Other)
  Sender: FDA-Public Use
  Company Number: JP-JNJFOC-20190206588

PATIENT
  Age: 79 Year
  Sex: Female
  Weight: 57.2 kg

DRUGS (12)
  1. ETIZOLAM [Suspect]
     Active Substance: ETIZOLAM
     Indication: PRODUCT USED FOR UNKNOWN INDICATION
     Dosage: AT BEDTIME
     Route: 048
     Dates: start: 2017
  2. SPIRONOLACTONE. [Concomitant]
     Active Substance: SPIRONOLACTONE
     Dosage: AFTER BREAKFAST
     Route: 048
     Dates: start: 20181214
  3. REMINYL [Suspect]
     Active Substance: GALANTAMINE
     Indication: DEMENTIA
     Dosage: GALANTAMINE HYDROBROMIDE:4MG AFTER BREAKFAST
     Route: 048
     Dates: start: 2017, end: 20190111
  4. BEZATOL [Suspect]
     Active Substance: BEZAFIBRATE
     Indication: PRODUCT USED FOR UNKNOWN INDICATION
     Dosage: AFTER BREAKFAST
     Route: 048
     Dates: start: 2017
  5. AMLODIPINE [Concomitant]
     Active Substance: AMLODIPINE BESYLATE
     Indication: HYPERTENSION
     Dosage: AFTER BREAKFAST
     Route: 048
  6. LIXIANA [Concomitant]
     Active Substance: EDOXABAN TOSYLATE
     Dosage: AFTER BREAKFAST
     Route: 048
  7. CARVEDILOL. [Concomitant]
     Active Substance: CARVEDILOL
     Dosage: AFTER BREAKFAST
     Route: 048
     Dates: start: 2019
  8. ARIPIPRAZOLE. [Suspect]
     Active Substance: ARIPIPRAZOLE
     Indication: PRODUCT USED FOR UNKNOWN INDICATION
     Dosage: AFTER BREAKFAST
     Route: 048
     Dates: start: 2017
  9. DIART [Concomitant]
     Active Substance: AZOSEMIDE
     Route: 048
  10. HALFDIGOXIN [Concomitant]
     Active Substance: DIGOXIN
     Route: 048
     Dates: start: 20181212
  11. CARVEDILOL. [Concomitant]
     Active Substance: CARVEDILOL
     Dosage: AFTER BREAKFAST
     Route: 048
     Dates: start: 20181212, end: 2019
  12. YOKUKANSAN [Concomitant]
     Active Substance: HERBALS
     Dosage: AFTER BREAKFAST?PERORAL MEDICINE
     Route: 048

REACTIONS (11)
  - Cardiac failure [Recovering/Resolving]
  - Feeding disorder [Not Recovered/Not Resolved]
  - Parkinsonism [Recovering/Resolving]
  - Dementia [Not Recovered/Not Resolved]
  - Neuroleptic malignant syndrome [Recovering/Resolving]
  - Pneumonia [Recovered/Resolved]
  - Inappropriate schedule of product administration [Unknown]
  - Off label use [Unknown]
  - Respiratory failure [Recovering/Resolving]
  - Arrhythmia [Recovering/Resolving]
  - Gait disturbance [Not Recovered/Not Resolved]

NARRATIVE: CASE EVENT DATE: 2017
